FAERS Safety Report 24585005 (Version 1)
Quarter: 2024Q4

REPORT INFORMATION
  Report Type: Spontaneous
  Country: CH (occurrence: CH)
  Receive Date: 20241106
  Receipt Date: 20241106
  Transmission Date: 20250115
  Serious: Yes (Other)
  Sender: MERCK
  Company Number: None

PATIENT
  Age: 68 Year
  Sex: Female
  Weight: 47 kg

DRUGS (9)
  1. KEYTRUDA [Suspect]
     Active Substance: PEMBROLIZUMAB
     Indication: Squamous cell carcinoma of lung
     Dosage: 200 MILLIGRAM
     Route: 040
     Dates: start: 20240403, end: 20240403
  2. EMEND [Suspect]
     Active Substance: APREPITANT
     Indication: Chemotherapy side effect prophylaxis
     Dosage: 125 MILLIGRAM
     Route: 048
     Dates: start: 20240403, end: 20240403
  3. PACLITAXEL [Suspect]
     Active Substance: PACLITAXEL
     Indication: Squamous cell carcinoma of lung
     Route: 040
     Dates: start: 20240403, end: 20240403
  4. PALONOSETRON [Suspect]
     Active Substance: PALONOSETRON
     Indication: Chemotherapy side effect prophylaxis
     Dosage: .25 MILLIGRAM
     Route: 040
     Dates: start: 20240403, end: 20240403
  5. CLEMASTINE [Suspect]
     Active Substance: CLEMASTINE
     Indication: Chemotherapy side effect prophylaxis
     Route: 040
     Dates: start: 20240403, end: 20240403
  6. CIMETIDINE [Suspect]
     Active Substance: CIMETIDINE
     Indication: Chemotherapy side effect prophylaxis
     Dosage: 400 MILLIGRAM
     Route: 048
     Dates: start: 20240403, end: 20240403
  7. DEXAMETHASONE [Suspect]
     Active Substance: DEXAMETHASONE
     Indication: Chemotherapy side effect prophylaxis
     Dosage: 12 MILLIGRAM
     Route: 040
     Dates: start: 20240403, end: 20240403
  8. DEXAMETHASONE [Suspect]
     Active Substance: DEXAMETHASONE
     Dosage: 20 MG 2X SUR 7 HEURES
     Route: 048
     Dates: start: 20240403, end: 20240403
  9. DAFALGAN [Suspect]
     Active Substance: ACETAMINOPHEN
     Indication: Chemotherapy side effect prophylaxis
     Dosage: 1000 MILLIGRAM
     Route: 048
     Dates: start: 20240403, end: 20240403

REACTIONS (4)
  - Type I hypersensitivity [Recovered/Resolved]
  - Urticaria [Recovered/Resolved]
  - Dyspnoea [Recovered/Resolved]
  - Tachycardia [Recovered/Resolved]

NARRATIVE: CASE EVENT DATE: 20240403
